FAERS Safety Report 8359843-4 (Version None)
Quarter: 2012Q2

REPORT INFORMATION
  Report Type: 
  Country: None (occurrence: None)
  Receive Date: 20120515
  Receipt Date: 20120504
  Transmission Date: 20120825
  Serious: Yes (Other)
  Sender: FDA-Public Use
  Company Number: US-JNJFOC-20120507483

PATIENT
  Age: 18 Year
  Sex: Male

DRUGS (3)
  1. GEODON [Suspect]
     Indication: PRODUCT USED FOR UNKNOWN INDICATION
     Route: 030
     Dates: start: 20120101
  2. INVEGA SUSTENNA [Suspect]
     Indication: SCHIZOAFFECTIVE DISORDER
     Route: 030
     Dates: start: 20110101
  3. GEODON [Suspect]
     Route: 030
     Dates: start: 20120101, end: 20120101

REACTIONS (1)
  - NEUROLEPTIC MALIGNANT SYNDROME [None]
